FAERS Safety Report 17846641 (Version 2)
Quarter: 2020Q2

REPORT INFORMATION
  Report Type: Spontaneous
  Country: GB (occurrence: GB)
  Receive Date: 20200601
  Receipt Date: 20200610
  Transmission Date: 20200714
  Serious: Yes (Other)
  Sender: FDA-Public Use
  Company Number: GB-MYLANLABS-2020M1052536

PATIENT
  Age: 76 Year
  Sex: Female

DRUGS (1)
  1. PRAMIPEXOLE MYLAN [Suspect]
     Active Substance: PRAMIPEXOLE DIHYDROCHLORIDE
     Indication: PRODUCT USED FOR UNKNOWN INDICATION
     Dosage: 1.57 MILLIGRAM, QD

REACTIONS (1)
  - Dystonia [Unknown]
